FAERS Safety Report 4368477-8 (Version None)
Quarter: 2004Q2

REPORT INFORMATION
  Report Type: 
  Country: None (occurrence: None)
  Receive Date: 20040602
  Receipt Date: 20040423
  Transmission Date: 20050107
  Serious: Yes (Hospitalization)
  Sender: FDA-Public Use
  Company Number: M04-341-037

PATIENT
  Age: 71 Year
  Sex: Male
  Weight: 105 kg

DRUGS (1)
  1. VELCADE [Suspect]
     Indication: MULTIPLE MYELOMA
     Dosage: 1.3 MG/M2 BIW: INTRAVENOUS BOLUS
     Route: 040
     Dates: start: 20040131, end: 20040206

REACTIONS (18)
  - ABDOMINAL DISTENSION [None]
  - ASTHENIA [None]
  - BREATH SOUNDS DECREASED [None]
  - CARDIOMEGALY [None]
  - CHEST X-RAY ABNORMAL [None]
  - CHRONIC OBSTRUCTIVE AIRWAYS DISEASE [None]
  - CREPITATIONS [None]
  - DIABETES MELLITUS [None]
  - DYSPNOEA EXERTIONAL [None]
  - FATIGUE [None]
  - FEELING ABNORMAL [None]
  - FOAMING AT MOUTH [None]
  - HERPES ZOSTER [None]
  - HYPERCAPNIA [None]
  - HYPOXIA [None]
  - MALAISE [None]
  - OEDEMA PERIPHERAL [None]
  - PULMONARY HYPERTENSION [None]
